FAERS Safety Report 7508522-1 (Version None)
Quarter: 2011Q2

REPORT INFORMATION
  Report Type: 
  Country: None (occurrence: None)
  Receive Date: 20110421
  Receipt Date: 20100402
  Transmission Date: 20111010
  Serious: Yes (Hospitalization)
  Sender: FDA-Public Use
  Company Number: SPV1-2010-00626

PATIENT
  Sex: Female

DRUGS (1)
  1. VYVANSE [Suspect]
     Dosage: NASAL
     Route: 045
     Dates: start: 20100331

REACTIONS (4)
  - INCORRECT ROUTE OF DRUG ADMINISTRATION [None]
  - LOSS OF CONSCIOUSNESS [None]
  - RESPIRATORY ARREST [None]
  - DRUG ABUSE [None]
